FAERS Safety Report 4933622-X (Version None)
Quarter: 2006Q1

REPORT INFORMATION
  Report Type: 
  Country: None (occurrence: None)
  Receive Date: 20060306
  Receipt Date: 20060222
  Transmission Date: 20060701
  Serious: Yes (Hospitalization)
  Sender: FDA-Public Use
  Company Number: JP-ROCHE-438174

PATIENT
  Age: 7 Year
  Sex: Male
  Weight: 27 kg

DRUGS (1)
  1. TAMIFLU [Suspect]
     Dosage: DOSE FORM REPORTED AS ORAL FORMULATION (NOT OTHERWISE SPECIFIED). EVENT DESCRIPTION REPORTED DRY SY+
     Route: 048
     Dates: start: 20060213, end: 20060213

REACTIONS (1)
  - ABNORMAL BEHAVIOUR [None]
